FAERS Safety Report 6010108-5 (Version None)
Quarter: 2008Q4

REPORT INFORMATION
  Report Type: 
  Country: None (occurrence: None)
  Receive Date: 20081217
  Receipt Date: 20081217
  Transmission Date: 20090506
  Serious: No
  Sender: FDA-Public Use
  Company Number: None

PATIENT
  Sex: Male
  Weight: 104.3273 kg

DRUGS (1)
  1. AVODART [Suspect]
     Indication: PROSTATOMEGALY
     Dates: start: 20070620, end: 20070730

REACTIONS (2)
  - BREAST PAIN [None]
  - BREAST SWELLING [None]
